FAERS Safety Report 18386477 (Version 1)
Quarter: 2020Q4

REPORT INFORMATION
  Report Type: Spontaneous
  Country: US (occurrence: US)
  Receive Date: 20201015
  Receipt Date: 20201015
  Transmission Date: 20210114
  Serious: Yes (Hospitalization)
  Sender: FDA-Public Use
  Company Number: US-VISTAPHARM, INC.-VER202010-001690

PATIENT
  Age: 54 Year
  Sex: Male

DRUGS (2)
  1. METHADONE [Suspect]
     Active Substance: METHADONE HYDROCHLORIDE
     Indication: BACK PAIN
     Dosage: 65 MG (50 MG IN MORNING AND 15 MG AT BEDTIME)
     Route: 065
  2. METHADONE [Suspect]
     Active Substance: METHADONE HYDROCHLORIDE
     Dosage: 65 MG (30 MG IN MORNING AND 35 MG BEDTIME)
     Route: 065

REACTIONS (2)
  - Product use in unapproved indication [Unknown]
  - Hypoglycaemia [Recovered/Resolved]
